FAERS Safety Report 9059052 (Version 1)
Quarter: 2013Q1

REPORT INFORMATION
  Report Type: Spontaneous
  Country: US (occurrence: US)
  Receive Date: 20130211
  Receipt Date: 20130211
  Transmission Date: 20140127
  Serious: No
  Sender: FDA-Public Use
  Company Number: US-BRISTOL-MYERS SQUIBB COMPANY-16655789

PATIENT
  Age: 73 Year
  Sex: Male

DRUGS (10)
  1. GLUCOPHAGE TABS 500 MG [Suspect]
     Dates: start: 2008
  2. PRILOSEC [Concomitant]
  3. COUMADIN [Concomitant]
  4. BENICAR [Concomitant]
  5. FUROSEMIDE [Concomitant]
  6. ZETIA [Concomitant]
  7. FISH OIL [Concomitant]
  8. VITAMIN C [Concomitant]
  9. ASPIRIN [Concomitant]
  10. TEMAZEPAM [Concomitant]
     Indication: SLEEP DISORDER

REACTIONS (2)
  - Tooth extraction [Unknown]
  - Dysgeusia [Unknown]
